FAERS Safety Report 11422277 (Version 1)
Quarter: 2015Q3

REPORT INFORMATION
  Report Type: Spontaneous
  Country: US (occurrence: None)
  Receive Date: 20150826
  Receipt Date: 20150826
  Transmission Date: 20151125
  Serious: No
  Sender: FDA-Public Use
  Company Number: None

PATIENT
  Age: 25 Year
  Sex: Male

DRUGS (10)
  1. MORPINE [Concomitant]
  2. GABAPENTIN. [Concomitant]
     Active Substance: GABAPENTIN
  3. LEVOTHYROXIN [Concomitant]
     Active Substance: LEVOTHYROXINE
  4. CLOTRIMAZOLE. [Concomitant]
     Active Substance: CLOTRIMAZOLE
  5. HYDROMORPHON [Concomitant]
     Active Substance: HYDROMORPHONE
  6. LORAZEPAM. [Concomitant]
     Active Substance: LORAZEPAM
  7. DICYLOMINE [Concomitant]
  8. VOTRIENT [Suspect]
     Active Substance: PAZOPANIB HYDROCHLORIDE
     Indication: BRAIN NEOPLASM MALIGNANT
     Route: 048
  9. MIRRAZAPINE [Concomitant]
  10. OXYCODINE [Concomitant]

REACTIONS (1)
  - Neoplasm [None]

NARRATIVE: CASE EVENT DATE: 20150804
